FAERS Safety Report 9001579 (Version 1)
Quarter: 2013Q1

REPORT INFORMATION
  Report Type: Spontaneous
  Country: FR (occurrence: FR)
  Receive Date: 20130107
  Receipt Date: 20130107
  Transmission Date: 20140127
  Serious: Yes (Hospitalization)
  Sender: FDA-Public Use
  Company Number: FR-TEVA-378584ISR

PATIENT
  Age: 59 Year
  Sex: Male

DRUGS (10)
  1. ATORVASTATIN [Suspect]
     Route: 065
  2. COLCHICINE [Interacting]
     Indication: GOUT
     Dosage: 3 MILLIGRAM DAILY; 3MG DAILY FOR 7 DAYS
     Route: 065
  3. CICLOSPORIN [Interacting]
     Route: 065
  4. KETOPROFEN [Concomitant]
     Indication: GOUT
     Dosage: 300 MILLIGRAM DAILY;
     Route: 065
  5. MYCOPHENOLATE MOFETIL [Concomitant]
     Route: 065
  6. PREDNISONE [Concomitant]
     Route: 065
  7. INSULIN [Concomitant]
     Indication: TYPE 2 DIABETES MELLITUS
     Route: 065
     Dates: start: 2002
  8. ASPIRIN [Concomitant]
     Route: 065
  9. OMEPRAZOLE [Concomitant]
     Route: 065
  10. BISOPROLOL [Concomitant]
     Route: 065

REACTIONS (8)
  - Gastrointestinal disorder [Recovering/Resolving]
  - Quadriparesis [Recovering/Resolving]
  - Haematotoxicity [Recovering/Resolving]
  - Renal failure acute [Recovering/Resolving]
  - Alopecia [Recovering/Resolving]
  - Toxicity to various agents [Recovering/Resolving]
  - Drug interaction [Recovering/Resolving]
  - Rhabdomyolysis [Recovering/Resolving]
